FAERS Safety Report 5794641-7 (Version None)
Quarter: 2008Q2

REPORT INFORMATION
  Report Type: 
  Country: None (occurrence: None)
  Receive Date: 20080626
  Receipt Date: 20080611
  Transmission Date: 20081010
  Serious: Yes (Hospitalization)
  Sender: FDA-Public Use
  Company Number: 2008S1010026

PATIENT
  Age: 9 Year
  Sex: Female

DRUGS (8)
  1. PHENYTOIN [Suspect]
     Indication: PROPHYLAXIS
  2. HYDROXYCARBAMIDE [Concomitant]
  3. CYCLOSPORINE [Concomitant]
  4. TACROLIMUS [Concomitant]
  5. FLUCONAZOLE [Concomitant]
  6. BUSULFAN [Concomitant]
  7. FLUDARABINE PHOSPHATE [Concomitant]
  8. ANTI-THYMOCYTE GLOBULIN NOS [Concomitant]

REACTIONS (5)
  - DRUG RASH WITH EOSINOPHILIA AND SYSTEMIC SYMPTOMS [None]
  - DRUG TOXICITY [None]
  - GRAFT DYSFUNCTION [None]
  - HEPATITIS [None]
  - PANCYTOPENIA [None]
